FAERS Safety Report 9293156 (Version 2)
Quarter: 2013Q3

REPORT INFORMATION
  Report Type: Spontaneous
  Country: JP (occurrence: None)
  Receive Date: 20130514
  Receipt Date: 20130731
  Transmission Date: 20140515
  Serious: Yes (Hospitalization)
  Sender: FDA-Public Use
  Company Number: TCI2012A07502

PATIENT
  Age: 61 Year
  Sex: Female

DRUGS (4)
  1. NESINA [Suspect]
     Indication: TYPE 2 DIABETES MELLITUS
     Dosage: (25 MG, 1 IN 1 D)
     Route: 048
     Dates: start: 20120227, end: 20120405
  2. MIGLITOL [Suspect]
     Indication: DIABETES MELLITUS
     Dosage: (50 MG, 3 IN 1 D)?BEFORE NOV/2011
     Route: 048
     Dates: start: 201111, end: 20120405
  3. PREDNISOLONE [Suspect]
  4. MITIGLINIDE CALCIUM HYDRATE [Concomitant]

REACTIONS (2)
  - Ileus [None]
  - No therapeutic response [None]
